FAERS Safety Report 22267264 (Version 8)
Quarter: 2024Q1

REPORT INFORMATION
  Report Type: Spontaneous
  Country: US (occurrence: US)
  Receive Date: 20230428
  Receipt Date: 20240111
  Transmission Date: 20240410
  Serious: Yes (Other)
  Sender: FDA-Public Use
  Company Number: US-PFIZER INC-PV202300075674

PATIENT
  Age: 74 Year
  Sex: Female

DRUGS (3)
  1. IBRANCE [Suspect]
     Active Substance: PALBOCICLIB
     Indication: Breast cancer female
     Dosage: ONCE DAILY 14 DAYS ON 7 DAYS OFF
     Route: 048
     Dates: start: 20220228
  2. IBRANCE [Suspect]
     Active Substance: PALBOCICLIB
     Dosage: ONCE DAILY 14 DAYS ON 7 DAYS OFF
     Route: 048
     Dates: start: 20220923, end: 20221223
  3. IBRANCE [Suspect]
     Active Substance: PALBOCICLIB
     Dosage: (TAKE ONE (1) TABLET BY MOUTH ONCE DAILY 14 DAYS ON 7 DAYS OFF)
     Route: 048

REACTIONS (2)
  - Dementia [Unknown]
  - Off label use [Unknown]

NARRATIVE: CASE EVENT DATE: 20220228
